FAERS Safety Report 6071500-6 (Version None)
Quarter: 2009Q1

REPORT INFORMATION
  Report Type: 
  Country: None (occurrence: None)
  Receive Date: 20090209
  Receipt Date: 20090209
  Transmission Date: 20090719
  Serious: No
  Sender: FDA-Public Use
  Company Number: None

PATIENT
  Sex: Female
  Weight: 58.514 kg

DRUGS (2)
  1. TRAMADOL HCL [Suspect]
     Indication: SCIATICA
     Dosage: 2 EVERY 8 HRS EVERY 8 HRS MOUTH
     Route: 048
     Dates: start: 20081031, end: 20081120
  2. TRAMADOL HCL [Suspect]
     Dosage: 2 EVERY 8 HRS EVERY 8 HR MOUTH
     Route: 048

REACTIONS (12)
  - CHROMATURIA [None]
  - CONSTIPATION [None]
  - DIZZINESS [None]
  - DYSPNOEA [None]
  - EAR DISCOMFORT [None]
  - EYE SWELLING [None]
  - HALLUCINATION [None]
  - HYPERHIDROSIS [None]
  - MALAISE [None]
  - PALPITATIONS [None]
  - PYREXIA [None]
  - SUPERFICIAL INJURY OF EYE [None]
